FAERS Safety Report 8032025-1 (Version None)
Quarter: 2012Q1

REPORT INFORMATION
  Report Type: 
  Country: None (occurrence: None)
  Receive Date: 20120109
  Receipt Date: 20110812
  Transmission Date: 20120608
  Serious: No
  Sender: FDA-Public Use
  Company Number: US-ABBOTT-11P-163-0846874-00

PATIENT
  Sex: Female
  Weight: 112.14 kg

DRUGS (6)
  1. VICODIN [Suspect]
     Indication: PAIN
  2. FENTANYL [Suspect]
     Indication: PAIN
  3. ESTRACE [Concomitant]
     Indication: OESTROGEN REPLACEMENT THERAPY
  4. PROZAC [Concomitant]
     Indication: ANXIETY
  5. PROZAC [Concomitant]
     Indication: DEPRESSION
  6. FLEXERIL [Suspect]
     Indication: PAIN

REACTIONS (3)
  - APHASIA [None]
  - SOMNOLENCE [None]
  - FEELING ABNORMAL [None]
